FAERS Safety Report 6254158-2 (Version None)
Quarter: 2009Q2

REPORT INFORMATION
  Report Type: 
  Country: None (occurrence: None)
  Receive Date: 20090630
  Receipt Date: 20090506
  Transmission Date: 20091009
  Serious: Yes (Other)
  Sender: FDA-Public Use
  Company Number: US-GDP-09405892

PATIENT
  Sex: Female

DRUGS (4)
  1. DIFFERIN [Suspect]
     Indication: ACNE
     Dosage: ( 1 DF BID TOPICAL)
     Route: 061
     Dates: start: 20090201
  2. EXCLUSIVE VITAMIN C [Concomitant]
  3. EVENING PRIMROSE OIL /01031101/ [Concomitant]
  4. COSMETICS [Concomitant]

REACTIONS (5)
  - DRY SKIN [None]
  - EYELID OEDEMA [None]
  - SKIN BURNING SENSATION [None]
  - SKIN IRRITATION [None]
  - SWELLING FACE [None]
